FAERS Safety Report 4633930-6 (Version None)
Quarter: 2005Q2

REPORT INFORMATION
  Report Type: 
  Country: None (occurrence: None)
  Receive Date: 20050407
  Receipt Date: 20050323
  Transmission Date: 20051028
  Serious: Yes (Hospitalization)
  Sender: FDA-Public Use
  Company Number: 05P-090-0295320-00

PATIENT
  Age: 25 Year
  Sex: Female

DRUGS (2)
  1. MERIDIA [Suspect]
     Indication: OBESITY
     Dosage: PER ORAL
     Route: 048
  2. LEAN CONTROL [Concomitant]

REACTIONS (1)
  - HEPATITIS FULMINANT [None]
